FAERS Safety Report 4876138-1 (Version None)
Quarter: 2006Q1

REPORT INFORMATION
  Report Type: 
  Country: None (occurrence: None)
  Receive Date: 20060106
  Receipt Date: 20051223
  Transmission Date: 20060701
  Serious: Yes (Death, Hospitalization)
  Sender: FDA-Public Use
  Company Number: GXKR2005TR02198

PATIENT
  Age: 22 Year
  Sex: Male

DRUGS (3)
  1. HYPERICUM PERFORATUM (NGX) (HYPERICUM PERFORATUM) [Suspect]
     Indication: DEPRESSION
     Dosage: 1000MG QD ORAL
     Route: 048
  2. AMOXICILLIN TRIHYDRATE [Suspect]
     Indication: INFECTION
  3. PROZAC [Suspect]
     Indication: DEPRESSION
     Dosage: 90 MG QD ORAL
     Route: 048

REACTIONS (18)
  - AGRANULOCYTOSIS [None]
  - BONE MARROW NECROSIS [None]
  - CARDIAC ARREST [None]
  - CYTOKINE RELEASE SYNDROME [None]
  - DYSPHAGIA [None]
  - FAT NECROSIS [None]
  - HEPATIC ENZYME INCREASED [None]
  - HYPERAEMIA [None]
  - MOUTH ULCERATION [None]
  - NEUTROPENIA [None]
  - NORMOCHROMIC NORMOCYTIC ANAEMIA [None]
  - OESOPHAGEAL CANDIDIASIS [None]
  - ORAL MUCOSAL DISORDER [None]
  - PHARYNGEAL CANDIDIASIS [None]
  - PHARYNGOLARYNGEAL PAIN [None]
  - PYREXIA [None]
  - THERAPY NON-RESPONDER [None]
  - VIRAL INFECTION [None]
